FAERS Safety Report 6701522-0 (Version None)
Quarter: 2010Q2

REPORT INFORMATION
  Report Type: 
  Country: None (occurrence: None)
  Receive Date: 20100429
  Receipt Date: 20100422
  Transmission Date: 20101027
  Serious: Yes (Other)
  Sender: FDA-Public Use
  Company Number: GB-JNJFOC-20100406910

PATIENT
  Sex: Male

DRUGS (2)
  1. REMINYL XR [Suspect]
     Indication: DRUG USE FOR UNKNOWN INDICATION
     Route: 065
  2. REMINYL XR [Suspect]
     Dosage: IN MORNING
     Route: 065

REACTIONS (3)
  - INCORRECT DOSE ADMINISTERED [None]
  - NO ADVERSE EVENT [None]
  - OVERDOSE [None]
